FAERS Safety Report 5590037-1 (Version None)
Quarter: 2008Q1

REPORT INFORMATION
  Report Type: 
  Country: None (occurrence: None)
  Receive Date: 20080114
  Receipt Date: 20070129
  Transmission Date: 20080703
  Serious: No
  Sender: FDA-Public Use
  Company Number: US-ABBOTT-07P-163-0357786-00

PATIENT
  Age: 20 Month
  Sex: Male
  Weight: 9.534 kg

DRUGS (1)
  1. CEFDINIR [Suspect]
     Indication: EAR INFECTION
     Route: 048
     Dates: start: 20070120, end: 20070127

REACTIONS (1)
  - HALLUCINATION [None]
